FAERS Safety Report 4629341-X (Version None)
Quarter: 2005Q2

REPORT INFORMATION
  Report Type: 
  Country: None (occurrence: None)
  Receive Date: 20050404
  Receipt Date: 20050322
  Transmission Date: 20051028
  Serious: Yes (Hospitalization)
  Sender: FDA-Public Use
  Company Number: GXKR2005JP00756

PATIENT
  Age: 70 Year
  Sex: Male
  Weight: 50 kg

DRUGS (7)
  1. RIMACTANE [Suspect]
     Indication: MYCOBACTERIA BLOOD TEST POSITIVE
     Dosage: 450 MG, ORAL
     Route: 048
     Dates: start: 20050211, end: 20050221
  2. ISONIAZID [Suspect]
     Indication: MYCOBACTERIA BLOOD TEST POSITIVE
     Dosage: 300 MG, ORAL
     Route: 048
     Dates: start: 20050211, end: 20050221
  3. ESANBUTOL(ETHAMBUTOL) [Suspect]
     Indication: MYCOBACTERIA BLOOD TEST POSITIVE
     Dosage: 750 MG, ORAL
     Route: 048
     Dates: start: 20050211, end: 20050221
  4. FUNGUARD (MICAFUNGUN SODIUM) [Concomitant]
  5. AMLODIPINE BESYLATE [Concomitant]
  6. NEUROTROPIN (ORGAN LYSATE, STANDARDIZED) [Concomitant]
  7. PREDNISOLONE [Concomitant]

REACTIONS (3)
  - BLOOD GLUCOSE INCREASED [None]
  - GLYCOSYLATED HAEMOGLOBIN INCREASED [None]
  - TOXIC EPIDERMAL NECROLYSIS [None]
